FAERS Safety Report 17820711 (Version 1)
Quarter: 2020Q2

REPORT INFORMATION
  Report Type: Spontaneous
  Country: GR (occurrence: GR)
  Receive Date: 20200525
  Receipt Date: 20200525
  Transmission Date: 20200714
  Serious: Yes (Life-Threatening, Other)
  Sender: FDA-Public Use
  Company Number: PHHY2018GR083505

PATIENT
  Age: 73 Year
  Sex: Female

DRUGS (13)
  1. OXALIPLATIN. [Suspect]
     Active Substance: OXALIPLATIN
     Indication: INSULINOMA
     Dosage: UNK
     Route: 065
  2. DIAZOXIDE [Suspect]
     Active Substance: DIAZOXIDE
     Indication: INSULINOMA
     Dosage: UNK
     Route: 065
  3. OXALIPLATIN. [Suspect]
     Active Substance: OXALIPLATIN
     Indication: PANCREATIC NEOPLASM
  4. CAPECITABINE. [Suspect]
     Active Substance: CAPECITABINE
     Indication: PANCREATIC NEOPLASM
     Dosage: UNK UNK, CYCLIC
     Route: 065
  5. CAPECITABINE. [Suspect]
     Active Substance: CAPECITABINE
     Indication: INSULINOMA
  6. EVEROLIMUS. [Concomitant]
     Active Substance: EVEROLIMUS
     Indication: PRODUCT USED FOR UNKNOWN INDICATION
     Dosage: 10 MILLIGRAM, QD
     Route: 065
  7. TEMOZOLOMIDE. [Suspect]
     Active Substance: TEMOZOLOMIDE
     Indication: INSULINOMA
  8. SOMATULINE [Suspect]
     Active Substance: LANREOTIDE ACETATE
     Indication: PANCREATIC NEOPLASM
     Route: 065
  9. TEMOZOLOMIDE. [Suspect]
     Active Substance: TEMOZOLOMIDE
     Indication: PANCREATIC NEOPLASM
     Dosage: UNK UNK, CYCLIC
     Route: 065
  10. SOMATOSTATIN [Suspect]
     Active Substance: SOMATOSTATIN
     Indication: INSULINOMA
     Dosage: UNK UNK, CYCLIC
     Route: 065
  11. 5-FLUOROURACIL [Suspect]
     Active Substance: FLUOROURACIL
     Indication: PANCREATIC NEOPLASM
  12. DIAZOXIDE [Suspect]
     Active Substance: DIAZOXIDE
     Indication: PANCREATIC NEOPLASM
  13. 5-FLUOROURACIL [Suspect]
     Active Substance: FLUOROURACIL
     Indication: INSULINOMA
     Dosage: UNK
     Route: 065

REACTIONS (6)
  - Insulinoma [Recovering/Resolving]
  - Hypoglycaemia [Recovered/Resolved]
  - Drug ineffective [Unknown]
  - Malignant neoplasm progression [Recovering/Resolving]
  - Condition aggravated [Recovering/Resolving]
  - Product use in unapproved indication [Unknown]
